FAERS Safety Report 7875466-5 (Version None)
Quarter: 2011Q4

REPORT INFORMATION
  Report Type: 
  Country: None (occurrence: None)
  Receive Date: 20111031
  Receipt Date: 20111022
  Transmission Date: 20120403
  Serious: Yes (Hospitalization)
  Sender: FDA-Public Use
  Company Number: PHEH2011US07660

PATIENT
  Age: 57 Year
  Sex: Male
  Weight: 84 kg

DRUGS (4)
  1. NALTREXONE HYDROCHLORIDE [Concomitant]
     Indication: MULTIPLE SCLEROSIS
     Dosage: 3.5 MG, ALL THE TIME
     Dates: start: 20031111
  2. INTERFERON BETA-1B [Suspect]
     Indication: MULTIPLE SCLEROSIS
     Route: 058
  3. GLATIRAMER ACETATE [Concomitant]
     Indication: MULTIPLE SCLEROSIS
     Dosage: UNK
     Route: 058
     Dates: start: 20040105
  4. SLEEP AID [Concomitant]
     Dosage: 10 MG, DAILY
     Dates: start: 20001230

REACTIONS (1)
  - GASTROINTESTINAL HAEMORRHAGE [None]
